FAERS Safety Report 7283200-5 (Version None)
Quarter: 2011Q1

REPORT INFORMATION
  Report Type: 
  Country: None (occurrence: None)
  Receive Date: 20110209
  Receipt Date: 20110131
  Transmission Date: 20110831
  Serious: Yes (Hospitalization)
  Sender: FDA-Public Use
  Company Number: IT-NOVOPROD-321605

PATIENT
  Sex: Male

DRUGS (6)
  1. PRAVASELECT [Concomitant]
     Dosage: 10 MG, QD
     Route: 048
  2. METFORMIN HCL [Suspect]
     Indication: DIABETES MELLITUS
     Dosage: 500 MG, QD
     Route: 048
     Dates: start: 20090901
  3. NOVONORM [Suspect]
     Indication: DIABETES MELLITUS
     Dosage: 1 MG, QD
     Route: 048
     Dates: start: 20090101
  4. TRIATEC                            /00116401/ [Concomitant]
     Dosage: 5 MG, QD
     Route: 048
  5. CARVEDILOLO [Concomitant]
     Dosage: 25 MG, QD
     Route: 048
  6. ASPIRIN [Concomitant]
     Dosage: 75 MG, QD
     Route: 048

REACTIONS (1)
  - HYPOGLYCAEMIC COMA [None]
